FAERS Safety Report 24248593 (Version 2)
Quarter: 2024Q3

REPORT INFORMATION
  Report Type: Spontaneous
  Country: US (occurrence: US)
  Receive Date: 20240826
  Receipt Date: 20240905
  Transmission Date: 20241017
  Serious: Yes (Other)
  Sender: BRISTOL MYERS SQUIBB
  Company Number: US-BRISTOL-MYERS SQUIBB COMPANY-2024-134226

PATIENT
  Age: 91 Year
  Sex: Female

DRUGS (2)
  1. LENALIDOMIDE [Suspect]
     Active Substance: LENALIDOMIDE
     Indication: Bone disorder
     Dosage: TAKE 1 CAPSULE BY MOUTH DAILY FOR 3 WEEKS, THEN 1 WEEK OFF
     Route: 048
     Dates: end: 20240827
  2. UNSPECIFIED INGREDIENT [Concomitant]
     Active Substance: UNSPECIFIED INGREDIENT
     Indication: Antiviral treatment

REACTIONS (9)
  - Plasma cell myeloma [Unknown]
  - Drug ineffective for unapproved indication [Unknown]
  - Pain [Recovering/Resolving]
  - Fatigue [Recovering/Resolving]
  - Nausea [Recovering/Resolving]
  - Decreased appetite [Recovering/Resolving]
  - Diarrhoea [Recovering/Resolving]
  - Blood pressure abnormal [Recovering/Resolving]
  - Eye disorder [Recovering/Resolving]
